FAERS Safety Report 7957742-0 (Version None)
Quarter: 2011Q4

REPORT INFORMATION
  Report Type: 
  Country: None (occurrence: None)
  Receive Date: 20111205
  Receipt Date: 20111205
  Transmission Date: 20120403
  Serious: Yes (Death, Life-Threatening, Hospitalization)
  Sender: FDA-Public Use
  Company Number: PHHO2010AR19507

PATIENT
  Sex: Female
  Weight: 48 kg

DRUGS (3)
  1. AFINITOR [Suspect]
     Indication: METASTATIC GASTRIC CANCER
     Dosage: 10 MG, UNK
     Route: 048
     Dates: start: 20101129, end: 20101229
  2. KLOSIDOL [Concomitant]
  3. OMEPRAZOL ^ACYFABRIK^ [Concomitant]

REACTIONS (5)
  - RESPIRATORY ARREST [None]
  - PNEUMONITIS [None]
  - DYSPNOEA [None]
  - DEHYDRATION [None]
  - COUGH [None]
